FAERS Safety Report 8529756 (Version 5)
Quarter: 2012Q4

REPORT INFORMATION
  Report Type: 
  Country: US (occurrence: US)
  Receive Date: 20120425
  Receipt Date: 20121114
  Transmission Date: 20130627
  Serious: No
  Sender: FDA-Public Use
  Company Number: US-BIOGENIDEC-2012BI013034

PATIENT
  Age: 36 Year
  Sex: Female
  Weight: 82 kg

DRUGS (9)
  1. TYSABRI [Suspect]
     Indication: CROHN^S DISEASE
     Route: 042
     Dates: start: 20100318
  2. VITAMIN D [Concomitant]
  3. MAGNESIUM [Concomitant]
  4. TOPAMAX [Concomitant]
  5. BACTRIM [Concomitant]
  6. MEDROL PACK [Concomitant]
  7. MACROBID [Concomitant]
  8. DIFLUCAN [Concomitant]
  9. PROCHLORPERAZINE MALEATE [Concomitant]

REACTIONS (7)
  - Muscular weakness [Recovered/Resolved]
  - Aphasia [Not Recovered/Not Resolved]
  - Diplopia [Recovered/Resolved]
  - Headache [Not Recovered/Not Resolved]
  - Migraine [Recovered/Resolved]
  - Post lumbar puncture syndrome [Recovered/Resolved]
  - Hypoaesthesia [Unknown]
